FAERS Safety Report 17892463 (Version 1)
Quarter: 2020Q2

REPORT INFORMATION
  Report Type: Spontaneous
  Country: CN (occurrence: CN)
  Receive Date: 20200612
  Receipt Date: 20200612
  Transmission Date: 20200714
  Serious: Yes (Hospitalization, Other)
  Sender: FDA-Public Use
  Company Number: CN-TAKEDA-2020TUS026283

PATIENT
  Age: 67 Year
  Sex: Female
  Weight: 62 kg

DRUGS (7)
  1. VALACICLOVIR [Concomitant]
     Active Substance: VALACYCLOVIR HYDROCHLORIDE
     Indication: ANTIVIRAL PROPHYLAXIS
     Dosage: 2 MILLIGRAM, QD
     Route: 048
     Dates: start: 20191231, end: 20200512
  2. VELCADE [Suspect]
     Active Substance: BORTEZOMIB
     Indication: PLASMA CELL MYELOMA
     Dosage: 2.2 MILLIGRAM
     Route: 058
     Dates: start: 20191127, end: 20200526
  3. DARATUMUMAB [Suspect]
     Active Substance: DARATUMUMAB
     Indication: PLASMA CELL MYELOMA
     Dosage: 992 MILLIGRAM
     Route: 042
     Dates: start: 20191126, end: 20200526
  4. LORATADINE. [Concomitant]
     Active Substance: LORATADINE
     Indication: HERPES ZOSTER
     Dosage: 10 MILLIGRAM, QD
     Route: 048
     Dates: start: 20200407
  5. MELPHALAN. [Suspect]
     Active Substance: MELPHALAN
     Indication: PLASMA CELL MYELOMA
     Dosage: 14 MILLIGRAM, QD
     Route: 048
     Dates: start: 20191126, end: 20200528
  6. PREDNISONE. [Suspect]
     Active Substance: PREDNISONE
     Indication: PLASMA CELL MYELOMA
     Dosage: 100 MILLIGRAM, QD
     Route: 048
     Dates: start: 20191126, end: 20200527
  7. ATORVASTATIN CALCIUM. [Concomitant]
     Active Substance: ATORVASTATIN CALCIUM
     Indication: OSTEOPOROSIS
     Dosage: 10 MILLIGRAM, QD
     Route: 048
     Dates: start: 20191112

REACTIONS (1)
  - Subarachnoid haemorrhage [Not Recovered/Not Resolved]

NARRATIVE: CASE EVENT DATE: 20200529
